FAERS Safety Report 4591290-3 (Version None)
Quarter: 2005Q1

REPORT INFORMATION
  Report Type: 
  Country: None (occurrence: None)
  Receive Date: 20050217
  Receipt Date: 20041214
  Transmission Date: 20050727
  Serious: Yes (Other)
  Sender: FDA-Public Use
  Company Number: A03200404239

PATIENT
  Age: 66 Year
  Sex: Female
  Weight: 62.1428 kg

DRUGS (5)
  1. PLAVIX [Suspect]
     Indication: STENT PLACEMENT
     Dosage: 75 MG QD - ORAL
     Route: 048
     Dates: start: 20040909, end: 20041102
  2. METOPROLOL - TABLET - UNIT DOSE : UNKNOWN [Suspect]
     Indication: VENTRICULAR EXTRASYSTOLES
     Dosage: 25 MG BID - ORAL
     Route: 048
     Dates: start: 20040901, end: 20041015
  3. PACLITAXEL [Suspect]
     Indication: STENT PLACEMENT
     Dates: start: 20040915
  4. ACETYLSALICYLIC ACID [Concomitant]
  5. NUTRITIONAL SUPPLEMENTS [Concomitant]

REACTIONS (12)
  - ADRENAL DISORDER [None]
  - CONTUSION [None]
  - DIARRHOEA [None]
  - FEELING ABNORMAL [None]
  - FLATULENCE [None]
  - HEART RATE DECREASED [None]
  - HEART RATE IRREGULAR [None]
  - INFLUENZA LIKE ILLNESS [None]
  - PAIN [None]
  - STOMACH DISCOMFORT [None]
  - THROAT IRRITATION [None]
  - THYROID DISORDER [None]
